FAERS Safety Report 5058381-4 (Version None)
Quarter: 2006Q3

REPORT INFORMATION
  Report Type: 
  Country: None (occurrence: None)
  Receive Date: 20060721
  Receipt Date: 20060711
  Transmission Date: 20061208
  Serious: Yes (Other)
  Sender: FDA-Public Use
  Company Number: GB-ABBOTT-06P-167-0338158-00

PATIENT

DRUGS (4)
  1. LOPINAVIR/RITONAVIR [Suspect]
     Indication: HIV INFECTION
     Dosage: 400/100 MG TWICE DAILY
  2. TENOFOVIR [Suspect]
     Indication: HIV INFECTION
  3. DIDANOSINE [Suspect]
     Indication: HIV INFECTION
  4. DIDANOSINE [Suspect]
     Dosage: 200 OR 250 MG DAILY

REACTIONS (2)
  - DRUG INTERACTION POTENTIATION [None]
  - RENAL FAILURE [None]
